FAERS Safety Report 8470643-7 (Version None)
Quarter: 2012Q2

REPORT INFORMATION
  Report Type: 
  Country: None (occurrence: None)
  Receive Date: 20120323
  Receipt Date: 20111222
  Transmission Date: 20120825
  Serious: Yes (Other)
  Sender: FDA-Public Use
  Company Number: 163-21880-11081747

PATIENT
  Age: 72 Year
  Sex: Male

DRUGS (4)
  1. REVLIMID [Suspect]
     Indication: MULTIPLE MYELOMA
     Dosage: 25 MG, 1 IN 1 D, PO: 10-25MG, DAILY, PO : 10 MG, 1 IN 1 D, PO : 25 MG, PO
     Route: 048
     Dates: start: 20100212
  2. REVLIMID [Suspect]
     Indication: MULTIPLE MYELOMA
     Dosage: 25 MG, 1 IN 1 D, PO: 10-25MG, DAILY, PO : 10 MG, 1 IN 1 D, PO : 25 MG, PO
     Route: 048
     Dates: start: 20101001
  3. REVLIMID [Suspect]
     Indication: MULTIPLE MYELOMA
     Dosage: 25 MG, 1 IN 1 D, PO: 10-25MG, DAILY, PO : 10 MG, 1 IN 1 D, PO : 25 MG, PO
     Route: 048
     Dates: start: 20110101
  4. REVLIMID [Suspect]
     Indication: MULTIPLE MYELOMA
     Dosage: 25 MG, 1 IN 1 D, PO: 10-25MG, DAILY, PO : 10 MG, 1 IN 1 D, PO : 25 MG, PO
     Route: 048
     Dates: start: 20100126, end: 20110808

REACTIONS (1)
  - BLOOD POTASSIUM DECREASED [None]
